FAERS Safety Report 6783701-X (Version None)
Quarter: 2010Q2

REPORT INFORMATION
  Report Type: 
  Country: None (occurrence: None)
  Receive Date: 20100622
  Receipt Date: 20100614
  Transmission Date: 20101027
  Serious: Yes (Other)
  Sender: FDA-Public Use
  Company Number: CA-ROCHE-709434

PATIENT
  Age: 46 Year
  Sex: Male

DRUGS (14)
  1. FUZEON [Suspect]
     Indication: DRUG USE FOR UNKNOWN INDICATION
     Dosage: DOSAGE FORM REPORTED AS POWDER FOR SOLUTION
     Route: 058
  2. INTELENCE [Suspect]
     Indication: DRUG USE FOR UNKNOWN INDICATION
     Route: 048
  3. LAMIVUDINE [Suspect]
     Indication: DRUG USE FOR UNKNOWN INDICATION
     Route: 048
  4. LAMIVUDINE [Suspect]
     Route: 048
  5. LAMIVUDINE [Suspect]
     Dosage: DURATION REPORTED AS 6 MONTHS
     Route: 048
  6. VIREAD [Suspect]
     Indication: DRUG USE FOR UNKNOWN INDICATION
     Route: 048
  7. ACYCLOVIR [Concomitant]
  8. BACTRIM [Concomitant]
  9. FENOFIBRATE [Concomitant]
     Dosage: DRUG REPORTED AS FENOFIBRATE(MICRO)
  10. FOLIC ACID [Concomitant]
  11. HYDROXYZINE [Concomitant]
  12. TEMAZEPAM [Concomitant]
  13. VITAMIN E [Concomitant]
  14. ZOPICLONE [Concomitant]

REACTIONS (6)
  - ALANINE AMINOTRANSFERASE INCREASED [None]
  - ASPARTATE AMINOTRANSFERASE INCREASED [None]
  - HEPATIC ENZYME INCREASED [None]
  - HEPATIC STEATOSIS [None]
  - LIVER DISORDER [None]
  - LYMPHADENOPATHY [None]
